FAERS Safety Report 6388736-7 (Version None)
Quarter: 2009Q4

REPORT INFORMATION
  Report Type: 
  Country: None (occurrence: None)
  Receive Date: 20091002
  Receipt Date: 20091002
  Transmission Date: 20100525
  Serious: Yes (Other)
  Sender: FDA-Public Use
  Company Number: None

PATIENT
  Sex: Male
  Weight: 44.9061 kg

DRUGS (1)
  1. AMPHETAMINES [Suspect]
     Indication: ATTENTION DEFICIT/HYPERACTIVITY DISORDER
     Dosage: 20MG ONE BID PO
     Route: 048
     Dates: start: 20090701, end: 20090729

REACTIONS (3)
  - CONVERSION DISORDER [None]
  - DECREASED APPETITE [None]
  - PSYCHOMOTOR HYPERACTIVITY [None]
